FAERS Safety Report 13821195 (Version 1)
Quarter: 2017Q3

REPORT INFORMATION
  Report Type: Spontaneous
  Country: US (occurrence: US)
  Receive Date: 20170801
  Receipt Date: 20170801
  Transmission Date: 20171127
  Serious: No
  Sender: FDA-Public Use
  Company Number: US-SEBELA IRELAND LIMITED-2017SEB00246

PATIENT
  Age: 26 Year
  Sex: Female

DRUGS (1)
  1. PEXEVA [Suspect]
     Active Substance: PAROXETINE MESYLATE

REACTIONS (3)
  - Withdrawal syndrome [Unknown]
  - Panic attack [Unknown]
  - Drug effect decreased [Unknown]
